FAERS Safety Report 12200900 (Version 1)
Quarter: 2016Q1

REPORT INFORMATION
  Report Type: Spontaneous
  Country: US (occurrence: US)
  Receive Date: 20160322
  Receipt Date: 20160322
  Transmission Date: 20160526
  Serious: No
  Sender: FDA-Public Use
  Company Number: US-UCBSA-2015036202

PATIENT
  Age: 46 Year
  Sex: Female

DRUGS (4)
  1. METHYLPHENIDATE HYDROCHLORIDE. [Suspect]
     Active Substance: METHYLPHENIDATE HYDROCHLORIDE
     Indication: NARCOLEPSY
     Dosage: UNKNOWN DOSE
     Dates: start: 2010
  2. MODAFINIL. [Concomitant]
     Active Substance: MODAFINIL
     Dosage: DOSE OF 200 MG
     Dates: end: 2010
  3. MODAFINIL. [Concomitant]
     Active Substance: MODAFINIL
     Indication: NARCOLEPSY
     Dosage: 200 MG THE MORNING AND A 100-MG ADDITIONAL DOSE IF NEEDED
     Dates: start: 2005
  4. METHYLPHENIDATE HYDROCHLORIDE. [Suspect]
     Active Substance: METHYLPHENIDATE HYDROCHLORIDE
     Indication: OFF LABEL USE

REACTIONS (1)
  - No adverse event [Unknown]
